FAERS Safety Report 24076464 (Version 1)
Quarter: 2024Q3

REPORT INFORMATION
  Report Type: Spontaneous
  Country: US (occurrence: US)
  Receive Date: 20240711
  Receipt Date: 20240711
  Transmission Date: 20241016
  Serious: Yes (Other)
  Sender: DR REDDYS
  Company Number: US-DRL-USA-LIT/USA/24/0009909

PATIENT
  Age: 15 Year
  Sex: Male

DRUGS (8)
  1. FLUOXETINE [Suspect]
     Active Substance: FLUOXETINE HYDROCHLORIDE
     Indication: Paranoia
     Dosage: 20MG DAILY
  2. FLUOXETINE [Suspect]
     Active Substance: FLUOXETINE HYDROCHLORIDE
     Indication: Intracranial lipoma
  3. RISPERIDONE [Suspect]
     Active Substance: RISPERIDONE
     Indication: Paranoia
     Dosage: 0.5MG AT BEDTIME
  4. RISPERIDONE [Suspect]
     Active Substance: RISPERIDONE
     Indication: Intracranial lipoma
  5. QUETIAPINE [Suspect]
     Active Substance: QUETIAPINE
     Indication: Paranoia
     Dosage: 50MG AT BEDTIME
  6. QUETIAPINE [Suspect]
     Active Substance: QUETIAPINE
     Indication: Intracranial lipoma
  7. ARIPIPRAZOLE [Concomitant]
     Active Substance: ARIPIPRAZOLE
     Indication: Paranoia
     Dosage: 2.5MG DAILY
  8. ARIPIPRAZOLE [Concomitant]
     Active Substance: ARIPIPRAZOLE
     Indication: Intracranial lipoma

REACTIONS (1)
  - Drug ineffective for unapproved indication [Unknown]
